FAERS Safety Report 6517914-9 (Version None)
Quarter: 2009Q4

REPORT INFORMATION
  Report Type: 
  Country: None (occurrence: None)
  Receive Date: 20091224
  Receipt Date: 20091211
  Transmission Date: 20100525
  Serious: Yes (Hospitalization)
  Sender: FDA-Public Use
  Company Number: US-ROCHE-674091

PATIENT
  Age: 44 Year
  Sex: Female
  Weight: 87.2 kg

DRUGS (3)
  1. BEVACIZUMAB [Suspect]
     Dosage: LAST DOSE GIVEN ON 05 NOVEMBER 2009. TOTAL DOSE ADMINISTERED THIS COURSE 1310 MG.
     Route: 065
     Dates: start: 20090813
  2. ABRAXANE [Suspect]
     Dosage: TOTAL DOSE ADMINISTERED THIS COURSE : 500 MG.  LAST DOSE ADMINISTERED ON 12 NOVEMBER 2009.
     Route: 065
     Dates: start: 20090813
  3. GEMZAR [Suspect]
     Dosage: TOTAL DOSE ADMINISTERED THIS COURSE : 4000 MG, LAST DOSE GIVEN OV 12 NOVEMBER 2009.
     Route: 065
     Dates: start: 20090813

REACTIONS (5)
  - CYST [None]
  - DIALYSIS [None]
  - GASTROINTESTINAL FISTULA [None]
  - INFECTION [None]
  - RENAL FAILURE [None]
